FAERS Safety Report 25803940 (Version 1)
Quarter: 2025Q3

REPORT INFORMATION
  Report Type: Spontaneous
  Country: US (occurrence: None)
  Receive Date: 20250915
  Receipt Date: 20250915
  Transmission Date: 20251020
  Serious: Yes (Hospitalization)
  Sender: FDA-CTU
  Company Number: None

PATIENT
  Sex: Male

DRUGS (1)
  1. LENALIDOMIDE [Suspect]
     Active Substance: LENALIDOMIDE
     Indication: Plasma cell myeloma
     Dosage: TAKE 1 CAPSULE BY MOUTH DAILY ON DAYS 1-21 THEN 7 DAYS OFF FOR A TOTAL CYCLE OF 28 DAYS. SWALLOW WHOLE WITH A GLASS OF WATER; DO NOT OPEN, CRUSH, CHEW, BREAK, OR DISSOLVE.
     Route: 048
     Dates: start: 20250228

REACTIONS (1)
  - Hospitalisation [None]
